FAERS Safety Report 18574711 (Version 3)
Quarter: 2023Q1

REPORT INFORMATION
  Report Type: Report from Study
  Country: KR (occurrence: KR)
  Receive Date: 20201203
  Receipt Date: 20230223
  Transmission Date: 20230418
  Serious: Yes (Hospitalization)
  Sender: FDA-Public Use
  Company Number: KR-OTSUKA-2020_030032

PATIENT
  Age: 45 Year
  Sex: Female

DRUGS (18)
  1. PONATINIB [Suspect]
     Active Substance: PONATINIB
     Indication: Philadelphia positive acute lymphocytic leukaemia
     Dosage: 45 MILLIGRAM, QD
     Route: 048
     Dates: start: 20181108, end: 20181205
  2. PONATINIB [Suspect]
     Active Substance: PONATINIB
     Dosage: 30 MILLIGRAM, QD
     Route: 048
     Dates: start: 20181206, end: 20190507
  3. PONATINIB [Suspect]
     Active Substance: PONATINIB
     Dosage: 45 MILLIGRAM, QD
     Route: 048
     Dates: start: 20190508
  4. HYDROCORTISONE SODIUM SUCCINATE [Concomitant]
     Active Substance: HYDROCORTISONE SODIUM SUCCINATE
     Indication: Premedication
     Dosage: 50 MILLIGRAM, QOD
     Route: 037
     Dates: start: 20181101, end: 20181101
  5. HYDROCORTISONE SODIUM SUCCINATE [Concomitant]
     Active Substance: HYDROCORTISONE SODIUM SUCCINATE
     Dosage: 50 MILLIGRAM
     Route: 037
     Dates: start: 20181109, end: 20190508
  6. LIDOCAINE [Concomitant]
     Active Substance: LIDOCAINE
     Indication: Premedication
     Dosage: 400 MILLIGRAM, QOD
     Route: 058
     Dates: start: 20181101, end: 20181101
  7. LIDOCAINE [Concomitant]
     Active Substance: LIDOCAINE
     Dosage: 400 MILLIGRAM
     Route: 058
     Dates: start: 20181109, end: 20190508
  8. CYTARABINE [Concomitant]
     Active Substance: CYTARABINE
     Indication: Acute lymphocytic leukaemia recurrent
     Dosage: 50 MILLIGRAM, QD
     Route: 037
     Dates: start: 20181109, end: 20190508
  9. SYNTHROID [Concomitant]
     Active Substance: LEVOTHYROXINE SODIUM
     Indication: Thyroidectomy
     Dosage: 0.125 MILLIGRAM, QD
     Route: 048
     Dates: start: 2010
  10. DICHLOZID [Concomitant]
     Indication: Thyroidectomy
     Dosage: 12.5 MILLIGRAM, QD
     Route: 048
     Dates: start: 20180503
  11. Aclova [Concomitant]
     Indication: Viral infection
     Dosage: 400 MILLIGRAM, QD
     Route: 048
     Dates: start: 20181129
  12. Aclova [Concomitant]
     Indication: Prophylaxis
  13. DICAMAX [Concomitant]
     Indication: Thyroidectomy
     Dosage: 250 MILLIGRAM, QD
     Route: 048
     Dates: start: 20181206
  14. EBASTINE [Concomitant]
     Active Substance: EBASTINE
     Indication: Product used for unknown indication
     Dosage: 10 MILLIGRAM, QD
     Route: 048
     Dates: start: 20181206
  15. Esomezol [Concomitant]
     Indication: Gastrointestinal disorder
     Dosage: 20 MILLIGRAM, QD
     Route: 048
     Dates: start: 20181217, end: 20190414
  16. ULTRACET [Concomitant]
     Active Substance: ACETAMINOPHEN\TRAMADOL HYDROCHLORIDE
     Indication: Herpes zoster
     Dosage: UNK, QD
     Route: 048
     Dates: start: 20181217, end: 20190414
  17. Alfa one [Concomitant]
     Indication: Herpes zoster
     Dosage: 0.5 MICROGRAM, QD
     Route: 048
     Dates: start: 20151017
  18. Godex [Concomitant]
     Indication: Aspartate aminotransferase increased
     Dosage: UNK
     Route: 065

REACTIONS (1)
  - Radiculopathy [Recovered/Resolved]

NARRATIVE: CASE EVENT DATE: 20190302
